FAERS Safety Report 25005669 (Version 5)
Quarter: 2025Q3

REPORT INFORMATION
  Report Type: Spontaneous
  Country: US (occurrence: US)
  Receive Date: 20250224
  Receipt Date: 20250703
  Transmission Date: 20251021
  Serious: No
  Sender: NOVARTIS
  Company Number: US-002147023-NVSC2025US030646

PATIENT
  Sex: Male

DRUGS (3)
  1. TAFINLAR [Suspect]
     Active Substance: DABRAFENIB MESYLATE
     Indication: Benign bone neoplasm
     Dosage: 150 MG, BID
     Route: 048
     Dates: start: 202412
  2. MEKINIST [Suspect]
     Active Substance: TRAMETINIB DIMETHYL SULFOXIDE
     Indication: Benign bone neoplasm
     Dosage: 2 MG, QD
     Route: 048
     Dates: start: 202412
  3. MEKINIST [Suspect]
     Active Substance: TRAMETINIB DIMETHYL SULFOXIDE
     Dosage: 2 MG, QD
     Route: 048
     Dates: start: 202412

REACTIONS (3)
  - Product temperature excursion issue [Unknown]
  - Product colour issue [Unknown]
  - Product dose omission issue [Unknown]
